FAERS Safety Report 5768469-8 (Version None)
Quarter: 2008Q2

REPORT INFORMATION
  Report Type: 
  Country: None (occurrence: None)
  Receive Date: 20080610
  Receipt Date: 20080605
  Transmission Date: 20081010
  Serious: Yes (Death)
  Sender: FDA-Public Use
  Company Number: 028727

PATIENT
  Age: 7 Year
  Sex: Female
  Weight: 25 kg

DRUGS (8)
  1. METHOTREXATE [Suspect]
  2. METHYLPREDNISOLONE [Suspect]
     Dosage: 300 MG/KG, INTRAVENOUS
     Route: 042
     Dates: start: 20070503, end: 20070505
  3. CYCLOSPORINE [Suspect]
     Dosage: 1 IN 1 DAYS,
     Dates: start: 20070502, end: 20070504
  4. KINERET [Suspect]
     Indication: VASCULITIS
     Dosage: 1 IN 1 DAYS, SUBCUTANEOUS
     Route: 058
     Dates: start: 20060322, end: 20070420
  5. PREDNISOLONE [Suspect]
     Dosage: ORAL
     Route: 048
     Dates: start: 20010620, end: 20020515
  6. CYCLOPHOSPHAMIDE [Suspect]
     Dosage: 800 MG, INTRAVENOUS
     Route: 042
     Dates: start: 20070427, end: 20070427
  7. ETANERCEPT(ETANERCEPT) [Suspect]
  8. AZATHIOPRINE [Suspect]

REACTIONS (5)
  - DRUG INTERACTION [None]
  - GENERAL PHYSICAL HEALTH DETERIORATION [None]
  - HISTIOCYTOSIS HAEMATOPHAGIC [None]
  - IMMUNOSUPPRESSION [None]
  - PARVOVIRUS INFECTION [None]
